FAERS Safety Report 15825317 (Version 1)
Quarter: 2019Q1

REPORT INFORMATION
  Report Type: Other
  Country: GB (occurrence: GB)
  Receive Date: 20190115
  Receipt Date: 20190115
  Transmission Date: 20190417
  Serious: Yes (Disabling, Other)
  Sender: FDA-Public Use
  Company Number: GB-LUPIN PHARMACEUTICALS INC.-2019-00022

PATIENT
  Age: 13 Year
  Sex: Female
  Weight: 53 kg

DRUGS (4)
  1. CIRCADIN [Concomitant]
     Active Substance: MELATONIN
     Indication: POOR QUALITY SLEEP
     Dosage: 2 MG, UNK
     Route: 048
     Dates: start: 2017
  2. SERTRALINE [Suspect]
     Active Substance: SERTRALINE HYDROCHLORIDE
     Indication: DEPRESSION
     Dosage: 25 MG, UNK,
     Route: 048
     Dates: start: 20180802
  3. SERTRALINE [Suspect]
     Active Substance: SERTRALINE HYDROCHLORIDE
     Dosage: 50 MG, UNK, DOSE INCREASED AFTER A FEW DAYS
     Route: 048
     Dates: start: 201808, end: 20180820
  4. OLANZAPINE. [Concomitant]
     Active Substance: OLANZAPINE
     Indication: ANXIETY
     Dosage: 5 MG, TAKEN FOR MEAL TIME
     Route: 048
     Dates: start: 201711

REACTIONS (1)
  - Seizure [Recovered/Resolved]

NARRATIVE: CASE EVENT DATE: 20180820
